FAERS Safety Report 8831035 (Version 1)
Quarter: 2012Q4

REPORT INFORMATION
  Report Type: 
  Country: US (occurrence: US)
  Receive Date: 20121008
  Receipt Date: 20121008
  Transmission Date: 20130627
  Serious: Yes (Hospitalization)
  Sender: FDA-Public Use
  Company Number: US-NOVOPROD-361383

PATIENT
  Age: 19 Year
  Sex: Female
  Weight: 26 kg

DRUGS (4)
  1. NORDITROPIN FLEXPRO [Suspect]
     Indication: BODY HEIGHT BELOW NORMAL
     Dosage: 0.15 mg, qd
     Route: 058
     Dates: start: 20100817, end: 20111226
  2. PHENOBARBITAL [Concomitant]
     Indication: CONVULSION
     Dosage: UNK
  3. DEPAKOTE [Concomitant]
     Indication: CONVULSION
  4. TOPAMAX [Concomitant]
     Indication: CONVULSION

REACTIONS (2)
  - Hepatomegaly [Recovering/Resolving]
  - Insomnia [Recovering/Resolving]
